FAERS Safety Report 10676770 (Version 1)
Quarter: 2014Q4

REPORT INFORMATION
  Report Type: Spontaneous
  Country: US (occurrence: US)
  Receive Date: 20141226
  Receipt Date: 20141226
  Transmission Date: 20150529
  Serious: No
  Sender: FDA-Public Use
  Company Number: US-BAYER-2014-189498

PATIENT
  Age: 73 Year
  Sex: Male
  Weight: 115.65 kg

DRUGS (1)
  1. ALEVE PM [Suspect]
     Active Substance: DIPHENHYDRAMINE HYDROCHLORIDE\NAPROXEN SODIUM
     Indication: ARTHRALGIA
     Dosage: 2 DF, ONCE
     Route: 048
     Dates: start: 20141222, end: 20141222

REACTIONS (2)
  - Drug ineffective [None]
  - Headache [Not Recovered/Not Resolved]

NARRATIVE: CASE EVENT DATE: 20141223
